FAERS Safety Report 5398214-X (Version None)
Quarter: 2007Q3

REPORT INFORMATION
  Report Type: 
  Country: None (occurrence: None)
  Receive Date: 20070726
  Receipt Date: 20070716
  Transmission Date: 20080115
  Serious: Yes (Hospitalization, Other)
  Sender: FDA-Public Use
  Company Number: AT-PFIZER INC-2007059014

PATIENT
  Age: 45 Year
  Sex: Female

DRUGS (1)
  1. FRAGMIN [Suspect]
     Indication: THROMBOPHLEBITIS

REACTIONS (2)
  - ACUTE GENERALISED EXANTHEMATOUS PUSTULOSIS [None]
  - INJECTION SITE REACTION [None]
